FAERS Safety Report 25683036 (Version 1)
Quarter: 2025Q3

REPORT INFORMATION
  Report Type: Spontaneous
  Country: IN (occurrence: IN)
  Receive Date: 20250814
  Receipt Date: 20250814
  Transmission Date: 20251021
  Serious: Yes (Death, Other)
  Sender: Alora Pharma
  Company Number: IN-OSMOTICA PHARMACEUTICALS-2025ALO02423

PATIENT
  Sex: Female

DRUGS (1)
  1. CARBAMAZEPINE [Suspect]
     Active Substance: CARBAMAZEPINE
     Route: 064

REACTIONS (2)
  - Aplasia cutis congenita [Fatal]
  - Foetal exposure during pregnancy [Recovered/Resolved]
